FAERS Safety Report 10064573 (Version 2)
Quarter: 2014Q2

REPORT INFORMATION
  Report Type: Spontaneous
  Country: JP (occurrence: None)
  Receive Date: 20140404
  Receipt Date: 20140408
  Transmission Date: 20141212
  Serious: Yes (Hospitalization)
  Sender: FDA-Public Use
  Company Number: JP-20140061

PATIENT
  Age: 66 Year
  Sex: Male

DRUGS (10)
  1. DOTAREM (MEGLUMINE GADOTERATE) [Suspect]
     Indication: NUCLEAR MAGNETIC RESONANCE IMAGING
     Route: 042
     Dates: start: 20140318, end: 20140318
  2. CEFAZOLIN SODIUM [Suspect]
     Indication: PRODUCT USED FOR UNKNOWN INDICATION
     Dosage: (NOT OTHERWISE SPECIFIED)
     Route: 042
     Dates: start: 20140319, end: 20140319
  3. CEFCAPENE PIVOXIL HYDROCHLORIDE [Concomitant]
  4. ATORVASTATIN (ATORVASTATIN) (ATORVASTATIN) [Concomitant]
  5. NIFEDIPINE (NIFEDIPINE) (NIFEDIPINE) [Concomitant]
  6. EPADEL-S (EICOSAPENTAENOIC ACID ETHYL ESTER) EICOSAPENTAENOIC ACID ETHYL ESTER) [Concomitant]
  7. GLIMEPIRIDE (GLIMEPIRIDE) (GLIMEPIRIDE) [Concomitant]
  8. FLIVAS (NAFTOPIDIL) (NAFTOPIDIL) [Concomitant]
  9. STAYBLA (IMIDAFENACIN) (IMIDAFENACIN) [Concomitant]
  10. ISOTONIC SODIUM CHLORIDE SOLUTION (SODIUM CHLORIDE) (SODIUM CHLORIDE) [Concomitant]

REACTIONS (17)
  - Renal impairment [None]
  - Hepatic function abnormal [None]
  - Oedema [None]
  - Anuria [None]
  - Decreased appetite [None]
  - Post procedural complication [None]
  - Alanine aminotransferase increased [None]
  - Blood lactate dehydrogenase increased [None]
  - Gamma-glutamyltransferase increased [None]
  - Blood bilirubin increased [None]
  - Blood creatinine increased [None]
  - Glomerular filtration rate decreased [None]
  - Blood urea increased [None]
  - Dialysis [None]
  - No therapeutic response [None]
  - Weight increased [None]
  - Back pain [None]
